FAERS Safety Report 4296271-5 (Version None)
Quarter: 2004Q1

REPORT INFORMATION
  Report Type: 
  Country: None (occurrence: None)
  Receive Date: 20040217
  Receipt Date: 20031002
  Transmission Date: 20041129
  Serious: Yes (Other)
  Sender: FDA-Public Use
  Company Number: US-GLAXOSMITHKLINE-A0428441A

PATIENT
  Age: 44 Year
  Sex: Male

DRUGS (3)
  1. LAMICTAL [Suspect]
     Indication: BIPOLAR DISORDER
     Route: 048
     Dates: start: 20030915
  2. ATENOLOL [Concomitant]
  3. KLONOPIN [Concomitant]

REACTIONS (3)
  - FATIGUE [None]
  - MANIA [None]
  - WEIGHT INCREASED [None]
